FAERS Safety Report 5391081-X (Version None)
Quarter: 2007Q3

REPORT INFORMATION
  Report Type: 
  Country: None (occurrence: None)
  Receive Date: 20070703
  Receipt Date: 20070703
  Transmission Date: 20080115
  Serious: Yes (Other)
  Sender: FDA-Public Use
  Company Number: 2007S1006012

PATIENT
  Age: 65 Year
  Sex: Female

DRUGS (8)
  1. AMLODIPINE BESYLATE [Suspect]
     Indication: HYPERTENSION
     Dosage: 2.5 MG;DAILY;ORAL, 5 MG;DAILY;ORAL
     Route: 048
     Dates: start: 20070629, end: 20070630
  2. AMLODIPINE BESYLATE [Suspect]
     Indication: HYPERTENSION
     Dosage: 2.5 MG;DAILY;ORAL, 5 MG;DAILY;ORAL
     Route: 048
     Dates: start: 20070630
  3. ADVAIR DISKUS 100/50 [Concomitant]
  4. SINGULAIR /01362601/ [Concomitant]
  5. ZYRTEC [Concomitant]
  6. ZOFRAN [Concomitant]
  7. AMBIEN [Concomitant]
  8. MSIR [Concomitant]

REACTIONS (7)
  - BLOOD PRESSURE INCREASED [None]
  - DYSGEUSIA [None]
  - FLUSHING [None]
  - HYPERHIDROSIS [None]
  - NAUSEA [None]
  - PALPITATIONS [None]
  - VERTIGO [None]
